FAERS Safety Report 8421615-X (Version None)
Quarter: 2012Q2

REPORT INFORMATION
  Report Type: 
  Country: None (occurrence: None)
  Receive Date: 20120608
  Receipt Date: 20120604
  Transmission Date: 20120825
  Serious: Yes (Death, Hospitalization, Other)
  Sender: FDA-Public Use
  Company Number: VE-PFIZER INC-2011160607

PATIENT
  Age: 73 Year
  Sex: Male

DRUGS (3)
  1. TENSOPIN [Concomitant]
     Indication: HYPERTENSION
     Dosage: 10 MG, 1X/DAY
     Route: 048
  2. LIPITOR [Suspect]
     Indication: HYPERTRIGLYCERIDAEMIA
     Dosage: 20 MG, 1X/DAY
     Route: 048
     Dates: start: 20030101
  3. LIPITOR [Suspect]
     Indication: HYPERCHOLESTEROLAEMIA

REACTIONS (4)
  - LUNG CYST [None]
  - CARCINOID TUMOUR PULMONARY [None]
  - DEATH [None]
  - NEOPLASM [None]
